FAERS Safety Report 11310466 (Version 2)
Quarter: 2015Q3

REPORT INFORMATION
  Report Type: Spontaneous
  Country: VE (occurrence: VE)
  Receive Date: 20150724
  Receipt Date: 20150820
  Transmission Date: 20151125
  Serious: Yes (Other)
  Sender: FDA-Public Use
  Company Number: PHHY2015VE089070

PATIENT
  Sex: Female

DRUGS (14)
  1. ACETAMINOPHEN. [Concomitant]
     Active Substance: ACETAMINOPHEN
     Indication: HEADACHE
  2. ACETAMINOPHEN. [Concomitant]
     Active Substance: ACETAMINOPHEN
     Indication: HYPERAESTHESIA
  3. TRAMADOL. [Concomitant]
     Active Substance: TRAMADOL
     Indication: ENDOCRINE DISORDER
  4. ESTRADOT [Suspect]
     Active Substance: ESTRADIOL
     Indication: PLATELET AGGREGATION ABNORMAL
     Dosage: 4 DF, Q96H
     Route: 062
  5. ACETAMINOPHEN. [Concomitant]
     Active Substance: ACETAMINOPHEN
     Indication: DEAFNESS
     Dosage: 500 MG, BID OR TID (WHEN NEEDED, AS REPORTED)
     Route: 065
  6. ACETAMINOPHEN. [Concomitant]
     Active Substance: ACETAMINOPHEN
     Indication: ENDOCRINE DISORDER
  7. TRAMAL [Concomitant]
     Active Substance: TRAMADOL
     Indication: HEADACHE
     Dosage: UNK
     Route: 065
  8. ESTRADOT [Suspect]
     Active Substance: ESTRADIOL
     Indication: HAEMORRHAGE PROPHYLAXIS
  9. ESTRADOT [Suspect]
     Active Substance: ESTRADIOL
     Indication: CAPILLARY FRAGILITY
  10. TRAMADOL. [Concomitant]
     Active Substance: TRAMADOL
     Indication: HEADACHE
  11. VITAMIN C [Concomitant]
     Active Substance: ASCORBIC ACID
     Indication: METABOLIC DISORDER
     Dosage: 500 MG, BID
     Route: 065
  12. TRAMADOL. [Concomitant]
     Active Substance: TRAMADOL
     Indication: DEAFNESS
     Dosage: 50 MG, QOD (WHEN NEEDED, AS REPORTED)
     Route: 065
  13. ESTRADOT [Suspect]
     Active Substance: ESTRADIOL
     Indication: CONGENITAL THROMBOCYTE DISORDER
  14. TRAMADOL. [Concomitant]
     Active Substance: TRAMADOL
     Indication: HYPERAESTHESIA

REACTIONS (6)
  - Haemorrhage [Unknown]
  - Irritable bowel syndrome [Unknown]
  - Flatulence [Unknown]
  - Petechiae [Unknown]
  - Melanosis coli [Unknown]
  - Off label use [Unknown]
